FAERS Safety Report 12631582 (Version 2)
Quarter: 2016Q3

REPORT INFORMATION
  Report Type: Spontaneous
  Country: US (occurrence: US)
  Receive Date: 20160808
  Receipt Date: 20160808
  Transmission Date: 20161109
  Serious: No
  Sender: FDA-Public Use
  Company Number: US-BEH-2015054767

PATIENT
  Sex: Female
  Weight: 66 kg

DRUGS (28)
  1. PROAIR HFA [Concomitant]
     Active Substance: ALBUTEROL SULFATE
  2. LEVOTHYROXINE. [Concomitant]
     Active Substance: LEVOTHYROXINE
  3. DICLOFENCE [Concomitant]
  4. VITAMIN B [Concomitant]
     Active Substance: VITAMIN B
  5. ALBUTEROL. [Concomitant]
     Active Substance: ALBUTEROL
  6. PRAVACHOL [Concomitant]
     Active Substance: PRAVASTATIN SODIUM
  7. NITROSTAT [Concomitant]
     Active Substance: NITROGLYCERIN
  8. SPIRIVA [Concomitant]
     Active Substance: TIOTROPIUM BROMIDE MONOHYDRATE
  9. VITAMIN D3 [Concomitant]
     Active Substance: CHOLECALCIFEROL
  10. NORCO [Concomitant]
     Active Substance: ACETAMINOPHEN\HYDROCODONE BITARTRATE
  11. HIZENTRA [Suspect]
     Active Substance: HUMAN IMMUNOGLOBULIN G
     Indication: IMMUNODEFICIENCY COMMON VARIABLE
     Route: 058
  12. ESTRACE [Concomitant]
     Active Substance: ESTRADIOL
  13. LOVAZA [Concomitant]
     Active Substance: OMEGA-3-ACID ETHYL ESTERS
  14. HIZENTRA [Suspect]
     Active Substance: HUMAN IMMUNOGLOBULIN G
     Route: 058
  15. SUCRALFATE. [Concomitant]
     Active Substance: SUCRALFATE
  16. FERROUS SULFATE. [Concomitant]
     Active Substance: FERROUS SULFATE
  17. TRAZODONE [Concomitant]
     Active Substance: TRAZODONE HYDROCHLORIDE
  18. PLAVIX [Concomitant]
     Active Substance: CLOPIDOGREL BISULFATE
  19. REGLAN [Concomitant]
     Active Substance: METOCLOPRAMIDE HYDROCHLORIDE
  20. LEFLUNOMIDE. [Concomitant]
     Active Substance: LEFLUNOMIDE
  21. METOPROLOL. [Concomitant]
     Active Substance: METOPROLOL
  22. PREDNISONE. [Concomitant]
     Active Substance: PREDNISONE
  23. NORVASC [Concomitant]
     Active Substance: AMLODIPINE BESYLATE
  24. NITROFURANTOIN. [Concomitant]
     Active Substance: NITROFURANTOIN
  25. ADVAIR HFA [Concomitant]
     Active Substance: FLUTICASONE PROPIONATE\SALMETEROL XINAFOATE
  26. CYMBALTA [Concomitant]
     Active Substance: DULOXETINE HYDROCHLORIDE
  27. GABAPENTIN. [Concomitant]
     Active Substance: GABAPENTIN
  28. ASPIRIN. [Concomitant]
     Active Substance: ASPIRIN

REACTIONS (2)
  - Infusion site erythema [Unknown]
  - Infusion site pruritus [Unknown]
